FAERS Safety Report 10555543 (Version 2)
Quarter: 2014Q4

REPORT INFORMATION
  Report Type: Report from Study
  Country: US (occurrence: US)
  Receive Date: 20141030
  Receipt Date: 20141030
  Transmission Date: 20150529
  Serious: Yes (Hospitalization)
  Sender: FDA-Public Use
  Company Number: US-BAYER-2014-119319

PATIENT
  Age: 79 Year
  Sex: Female
  Weight: 84 kg

DRUGS (5)
  1. ADEMPAS [Suspect]
     Active Substance: RIOCIGUAT
     Indication: PULMONARY ARTERIAL HYPERTENSION
  2. PRADAXA [Concomitant]
     Active Substance: DABIGATRAN ETEXILATE MESYLATE
  3. ADEMPAS [Suspect]
     Active Substance: RIOCIGUAT
     Indication: PULMONARY ARTERIAL HYPERTENSION
     Dosage: 0.5 MG, TID
     Route: 048
     Dates: start: 20140722
  4. LETAIRIS [Concomitant]
     Active Substance: AMBRISENTAN
     Dosage: UNK
     Dates: start: 20130104
  5. ASPIRIN. [Concomitant]
     Active Substance: ASPIRIN

REACTIONS (21)
  - Bradycardia [None]
  - Productive cough [None]
  - Dyspnoea exertional [None]
  - Orthopnoea [None]
  - Dyspnoea paroxysmal nocturnal [None]
  - Bronchitis [Recovering/Resolving]
  - Oedema [None]
  - Fluid retention [None]
  - Dyspnoea [None]
  - Haemoptysis [None]
  - Pneumonia [None]
  - Headache [None]
  - Breath sounds abnormal [None]
  - Chest discomfort [None]
  - Dry mouth [None]
  - Cardiac failure chronic [None]
  - Weight increased [Recovering/Resolving]
  - Chest pain [None]
  - Cough [None]
  - Breast tenderness [None]
  - Respiratory tract congestion [None]

NARRATIVE: CASE EVENT DATE: 20140722
